FAERS Safety Report 8608160-3 (Version None)
Quarter: 2012Q3

REPORT INFORMATION
  Report Type: 
  Country: None (occurrence: None)
  Receive Date: 20120821
  Receipt Date: 20110914
  Transmission Date: 20120928
  Serious: No
  Sender: FDA-Public Use
  Company Number: US-TEVA-300718USA

PATIENT
  Sex: Female

DRUGS (3)
  1. NITROFURANTOIN [Concomitant]
     Dates: end: 20110913
  2. FLUCONAZOLE [Suspect]
     Dates: start: 20110912
  3. THYROID MEDICATION (NOS) [Concomitant]

REACTIONS (1)
  - DECREASED APPETITE [None]
